FAERS Safety Report 7038254-8 (Version None)
Quarter: 2010Q4

REPORT INFORMATION
  Report Type: 
  Country: None (occurrence: None)
  Receive Date: 20101011
  Receipt Date: 20091027
  Transmission Date: 20110411
  Serious: No
  Sender: FDA-Public Use
  Company Number: US-PFIZER INC-2009266715

PATIENT
  Sex: Male
  Weight: 76.644 kg

DRUGS (6)
  1. NEURONTIN [Suspect]
     Indication: SLEEP DISORDER
     Dosage: 300 MG, UNK
     Dates: start: 20090821
  2. LOPRESSOR [Concomitant]
     Dosage: UNK
  3. GLIPIZIDE [Concomitant]
     Dosage: UNK
  4. ASPIRIN [Concomitant]
     Dosage: UNK
  5. PLAVIX [Concomitant]
     Dosage: UNK
  6. METFORMIN [Concomitant]
     Dosage: UNK

REACTIONS (1)
  - GASTROINTESTINAL DISORDER [None]
